FAERS Safety Report 21625304 (Version 1)
Quarter: 2022Q4

REPORT INFORMATION
  Report Type: Spontaneous
  Country: US (occurrence: US)
  Receive Date: 20221122
  Receipt Date: 20221122
  Transmission Date: 20230112
  Serious: Yes (Other)
  Sender: FDA-Public Use
  Company Number: US-ENDO PHARMACEUTICALS INC-2022-006283

PATIENT
  Age: 16 Year
  Sex: Male
  Weight: 88 kg

DRUGS (33)
  1. DEXMEDETOMIDINE HYDROCHLORIDE [Suspect]
     Active Substance: DEXMEDETOMIDINE HYDROCHLORIDE
     Indication: Analgesic therapy
     Dosage: 0.3 MCG/KG/HR (DURING SECOND AND THIRD HOUR)
     Route: 041
  2. DEXMEDETOMIDINE HYDROCHLORIDE [Suspect]
     Active Substance: DEXMEDETOMIDINE HYDROCHLORIDE
     Dosage: 0.2 MCG/KG/HR (DURING FOURTH HOUR)
     Route: 041
  3. PROPOFOL [Concomitant]
     Active Substance: PROPOFOL
     Indication: Maintenance of anaesthesia
     Dosage: 150-175 MCG/KG/MIN, UNKNOWN, (DURING FIRST HOUR)
     Route: 041
  4. PROPOFOL [Concomitant]
     Active Substance: PROPOFOL
     Dosage: 150-175 MCG/KG/MIN, UNKNOWN, (DURING SECOND HOUR)
     Route: 041
  5. PROPOFOL [Concomitant]
     Active Substance: PROPOFOL
     Dosage: 150 MCG/KG/MIN, UNKNOWN, (DURING THIRD HOUR)
     Route: 041
  6. PROPOFOL [Concomitant]
     Active Substance: PROPOFOL
     Dosage: 150 MCG/KG/MIN, UNKNOWN, (DURING FOURTH HOUR)
     Route: 041
  7. PROPOFOL [Concomitant]
     Active Substance: PROPOFOL
     Dosage: 150 MCG/KG/MIN, UNKNOWN, (DURING FIFTH HOUR)
     Route: 041
  8. PROPOFOL [Concomitant]
     Active Substance: PROPOFOL
     Dosage: 80-150 MCG/KG/MIN, UNKNOWN, (DURING SIXTH HOUR)
     Route: 041
  9. PROPOFOL [Concomitant]
     Active Substance: PROPOFOL
     Dosage: 80 MCG/KG/MIN, UNKNOWN, (DURING SEVENTH HOUR)
     Route: 041
  10. PROPOFOL [Concomitant]
     Active Substance: PROPOFOL
     Indication: Induction and maintenance of anaesthesia
     Dosage: 200 MG, UNKNOWN (DURING INDUCTION)
     Route: 041
  11. PROPOFOL [Concomitant]
     Active Substance: PROPOFOL
     Dosage: 100 MG, UNKNOWN (DURING FIRST HOUR)
     Route: 041
  12. SEVOFLURANE [Concomitant]
     Active Substance: SEVOFLURANE
     Indication: Maintenance of anaesthesia
     Dosage: 0.2-0.6 MAC, UNKNOWN (DURING FIRST HOUR)
     Route: 041
  13. SEVOFLURANE [Concomitant]
     Active Substance: SEVOFLURANE
     Dosage: 0.4-0.5 MAC, UNKNOWN (DURING SECOND HOUR)
     Route: 041
  14. SEVOFLURANE [Concomitant]
     Active Substance: SEVOFLURANE
     Dosage: 0.2-0.3 MAC, UNKNOWN (DURING THIRD HOUR)
     Route: 041
  15. SEVOFLURANE [Concomitant]
     Active Substance: SEVOFLURANE
     Dosage: 0.1 MAC, UNKNOWN (DURING FOURTH HOUR)
     Route: 041
  16. SEVOFLURANE [Concomitant]
     Active Substance: SEVOFLURANE
     Dosage: 0.3-0.5 MAC, UNKNOWN (DURING FIFTH HOUR)
     Route: 041
  17. SEVOFLURANE [Concomitant]
     Active Substance: SEVOFLURANE
     Dosage: 0.5-0.6 MAC, UNKNOWN (DURING SIXTH HOUR)
     Route: 041
  18. SEVOFLURANE [Concomitant]
     Active Substance: SEVOFLURANE
     Dosage: 0.6-0.8 MAC, UNKNOWN (DURING SEVENTH HOUR)
     Route: 041
  19. SEVOFLURANE [Concomitant]
     Active Substance: SEVOFLURANE
     Dosage: 0.2-0.7 MAC, UNKNOWN (DURING EIGHTH HOUR)
     Route: 041
  20. REMIFENTANIL [Concomitant]
     Active Substance: REMIFENTANIL
     Indication: Induction and maintenance of anaesthesia
     Dosage: 0.2 MCG/KG/HR (DURING INDUCTION)
     Route: 041
  21. REMIFENTANIL [Concomitant]
     Active Substance: REMIFENTANIL
     Dosage: 0.25-0.3 MCG/KG/HR (DURING FIRST HOUR)
     Route: 041
  22. REMIFENTANIL [Concomitant]
     Active Substance: REMIFENTANIL
     Dosage: 0.3 MCG/KG/HR (DURING SECOND HOUR)
     Route: 041
  23. REMIFENTANIL [Concomitant]
     Active Substance: REMIFENTANIL
     Dosage: 0.3 MCG/KG/HR (DURING THIRD HOUR)
     Route: 041
  24. REMIFENTANIL [Concomitant]
     Active Substance: REMIFENTANIL
     Dosage: 0.3 MCG/KG/HR (DURING FOURTH HOUR)
     Route: 041
  25. REMIFENTANIL [Concomitant]
     Active Substance: REMIFENTANIL
     Dosage: 0.3 MCG/KG/HR (DURING FIFTH HOUR)
     Route: 041
  26. REMIFENTANIL [Concomitant]
     Active Substance: REMIFENTANIL
     Dosage: 0.3 MCG/KG/HR (DURING SIXTH HOUR)
     Route: 041
  27. REMIFENTANIL [Concomitant]
     Active Substance: REMIFENTANIL
     Dosage: 0.3 MCG/KG/HR (DURING SEVENTH HOUR)
     Route: 041
  28. MIDAZOLAM [Concomitant]
     Active Substance: MIDAZOLAM
     Indication: Induction of anaesthesia
     Dosage: 2 MG, UNKNOWN (DURING INDUCTION)
     Route: 065
  29. ROCURONIUM [Concomitant]
     Active Substance: ROCURONIUM BROMIDE
     Indication: Induction and maintenance of anaesthesia
     Dosage: 50 MG, UNKNOWN (DURING INDUCTION)
     Route: 065
  30. ROCURONIUM [Concomitant]
     Active Substance: ROCURONIUM BROMIDE
     Dosage: 70 MG, UNKNOWN (DURING FIRST HOUR)
     Route: 065
  31. FENTANYL [Concomitant]
     Active Substance: FENTANYL
     Indication: Induction and maintenance of anaesthesia
     Dosage: 50 ?G, UNKNOWN (DURING INDUCTION)
     Route: 065
  32. FENTANYL [Concomitant]
     Active Substance: FENTANYL
     Dosage: 50 ?G, UNKNOWN (DURING FIRST HOUR)
     Route: 065
  33. LIDOCAINE [Concomitant]
     Active Substance: LIDOCAINE
     Indication: Induction and maintenance of anaesthesia
     Dosage: 100 MG, UNKNOWN (DURING INDUCTION)
     Route: 065

REACTIONS (2)
  - Diabetes insipidus [Recovered/Resolved]
  - Off label use [Recovered/Resolved]
